FAERS Safety Report 20572066 (Version 2)
Quarter: 2022Q2

REPORT INFORMATION
  Report Type: Report from Study
  Country: BR (occurrence: BR)
  Receive Date: 20220309
  Receipt Date: 20220419
  Transmission Date: 20220720
  Serious: Yes (Other)
  Sender: FDA-Public Use
  Company Number: BR-ABBVIE-22K-020-4303616-00

PATIENT
  Age: 24 Year
  Sex: Female
  Weight: 112 kg

DRUGS (3)
  1. RINVOQ [Suspect]
     Active Substance: UPADACITINIB
     Indication: Rheumatoid arthritis
     Route: 048
     Dates: start: 20211109
  2. RINVOQ [Suspect]
     Active Substance: UPADACITINIB
     Route: 048
     Dates: start: 20211109
  3. RINVOQ [Suspect]
     Active Substance: UPADACITINIB
     Route: 048

REACTIONS (13)
  - Neuropathy peripheral [Recovered/Resolved]
  - Gait inability [Unknown]
  - Ligament sprain [Unknown]
  - Limb discomfort [Unknown]
  - Immunodeficiency [Unknown]
  - Weight increased [Unknown]
  - Hypoaesthesia [Unknown]
  - Pain [Unknown]
  - Swelling [Unknown]
  - Oropharyngeal pain [Recovered/Resolved]
  - Sinusitis [Recovered/Resolved]
  - COVID-19 [Recovered/Resolved]
  - Fall [Recovering/Resolving]

NARRATIVE: CASE EVENT DATE: 20220101
